FAERS Safety Report 4683635-0 (Version None)
Quarter: 2005Q2

REPORT INFORMATION
  Report Type: 
  Country: None (occurrence: None)
  Receive Date: 20050602
  Receipt Date: 20050309
  Transmission Date: 20051028
  Serious: No
  Sender: FDA-Public Use
  Company Number: US_0503114495

PATIENT
  Age: 57 Year
  Sex: Female

DRUGS (2)
  1. CYMBALTA [Suspect]
     Dosage: 120 MG
  2. PROLIXIN [Concomitant]

REACTIONS (2)
  - PRESCRIBED OVERDOSE [None]
  - URINARY RETENTION [None]
